FAERS Safety Report 10252738 (Version 1)
Quarter: 2014Q2

REPORT INFORMATION
  Report Type: Spontaneous
  Country: IT (occurrence: IT)
  Receive Date: 20140623
  Receipt Date: 20140623
  Transmission Date: 20141212
  Serious: Yes (Hospitalization, Other)
  Sender: FDA-Public Use
  Company Number: IT-WATSON-2014-13036

PATIENT
  Age: 48 Year
  Sex: Male

DRUGS (2)
  1. LORAZEPAM (UNKNOWN) [Suspect]
     Indication: ANXIETY
     Dosage: 15 MG, TOTAL
     Route: 048
     Dates: start: 20140509, end: 20140509
  2. ALCOHOL [Suspect]
     Indication: PRODUCT USED FOR UNKNOWN INDICATION
     Dosage: UNK
     Route: 065
     Dates: start: 20140509, end: 20140509

REACTIONS (3)
  - Anxiety [Recovered/Resolved]
  - Drug abuse [Recovered/Resolved]
  - Dysphoria [Recovered/Resolved]
